FAERS Safety Report 11859780 (Version 2)
Quarter: 2015Q4

REPORT INFORMATION
  Report Type: Report from Study
  Country: ES (occurrence: ES)
  Receive Date: 20151222
  Receipt Date: 20151223
  Transmission Date: 20160305
  Serious: Yes (Hospitalization, Disabling)
  Sender: FDA-Public Use
  Company Number: ES-ROCHE-1661822

PATIENT
  Age: 31 Year
  Sex: Male
  Weight: 120 kg

DRUGS (1)
  1. COBIMETINIB [Suspect]
     Active Substance: COBIMETINIB
     Indication: MALIGNANT MELANOMA
     Dosage: MODIFIED FROM 20 MG TO 60MG?WITH 1 WEEK BREAK?RECEIVED TOTAL OF 3 CYCLES
     Route: 048
     Dates: end: 20151023

REACTIONS (3)
  - Cerebellar haemorrhage [Unknown]
  - Cerebral disorder [Unknown]
  - Lung disorder [Unknown]

NARRATIVE: CASE EVENT DATE: 20151023
